FAERS Safety Report 13671652 (Version 1)
Quarter: 2017Q2

REPORT INFORMATION
  Report Type: Spontaneous
  Country: US (occurrence: US)
  Receive Date: 20170620
  Receipt Date: 20170620
  Transmission Date: 20170830
  Serious: No
  Sender: FDA-Public Use
  Company Number: US-ROCHE-628122

PATIENT
  Age: 91 Year
  Sex: Male

DRUGS (5)
  1. SIMVASTATIN. [Concomitant]
     Active Substance: SIMVASTATIN
     Route: 065
  2. FLUOROURACIL. [Suspect]
     Active Substance: FLUOROURACIL
     Indication: CHEMOTHERAPY
     Route: 042
  3. FOLINIC ACID [Suspect]
     Active Substance: LEUCOVORIN
     Indication: CHEMOTHERAPY
     Route: 042
  4. LISINOPRIL. [Concomitant]
     Active Substance: LISINOPRIL
     Route: 065
  5. XELODA [Suspect]
     Active Substance: CAPECITABINE
     Indication: GASTROINTESTINAL CARCINOMA
     Route: 065

REACTIONS (29)
  - Amnesia [Not Recovered/Not Resolved]
  - Pruritus [Unknown]
  - Abdominal pain [Unknown]
  - Swelling [Unknown]
  - Diarrhoea [Unknown]
  - Hypoaesthesia [Unknown]
  - Decreased appetite [Unknown]
  - Lacrimation increased [Unknown]
  - Gait disturbance [Not Recovered/Not Resolved]
  - Vomiting [Not Recovered/Not Resolved]
  - Hyperaesthesia [Unknown]
  - Dry mouth [Unknown]
  - Stomatitis [Unknown]
  - Ageusia [Not Recovered/Not Resolved]
  - Constipation [Unknown]
  - Dysphonia [Not Recovered/Not Resolved]
  - Chapped lips [Unknown]
  - Oropharyngeal pain [Unknown]
  - Oedema peripheral [Unknown]
  - Weight decreased [Unknown]
  - Ill-defined disorder [Unknown]
  - Asthenia [Not Recovered/Not Resolved]
  - Nasopharyngitis [Unknown]
  - Paraesthesia [Unknown]
  - Alopecia [Not Recovered/Not Resolved]
  - Vision blurred [Unknown]
  - Dry skin [Unknown]
  - Sneezing [Unknown]
  - Fatigue [Not Recovered/Not Resolved]
